FAERS Safety Report 15828852 (Version 1)
Quarter: 2019Q1

REPORT INFORMATION
  Report Type: Spontaneous
  Country: US (occurrence: US)
  Receive Date: 20190115
  Receipt Date: 20190115
  Transmission Date: 20190417
  Serious: No
  Sender: FDA-Public Use
  Company Number: US-ALLERGAN-1732482US

PATIENT
  Age: 77 Year
  Sex: Female

DRUGS (4)
  1. RESTASIS [Suspect]
     Active Substance: CYCLOSPORINE
     Indication: TRIGEMINAL NERVE DISORDER
  2. RESTASIS [Suspect]
     Active Substance: CYCLOSPORINE
     Indication: DRY EYE
     Dosage: UNK, BID
     Route: 047
     Dates: start: 20170716
  3. RESTASIS [Suspect]
     Active Substance: CYCLOSPORINE
     Indication: MACULAR DEGENERATION
  4. CARBAMAZEPINE. [Concomitant]
     Active Substance: CARBAMAZEPINE
     Indication: HEADACHE

REACTIONS (4)
  - Off label use [Unknown]
  - Product dose omission [Unknown]
  - Physical product label issue [Unknown]
  - Product container issue [Unknown]

NARRATIVE: CASE EVENT DATE: 20170727
